FAERS Safety Report 25230455 (Version 1)
Quarter: 2025Q2

REPORT INFORMATION
  Report Type: Spontaneous
  Country: US (occurrence: US)
  Receive Date: 20250423
  Receipt Date: 20250423
  Transmission Date: 20250716
  Serious: No
  Sender: SYMOGEN
  Company Number: US-PARTNER THERAPEUTICS-2024PTX00015

PATIENT
  Sex: Male
  Weight: 14.785 kg

DRUGS (3)
  1. LEUKINE [Suspect]
     Active Substance: SARGRAMOSTIM
     Indication: Adrenal gland cancer
     Dosage: 0.7 ML (175 ?G), EVERY MORNING ON DAYS 6 THRU 12 OF EACH 21 DAY CYCLE
     Route: 058
  2. LEUKINE [Suspect]
     Active Substance: SARGRAMOSTIM
     Dosage: 0.7 ML (175 ?G), EVERY MORNING ON DAYS 6 THRU 12 OF EACH 21 DAY CYCLE
     Route: 058
  3. STERILE WATER [Concomitant]
     Active Substance: WATER

REACTIONS (3)
  - Weight increased [Unknown]
  - No adverse event [Unknown]
  - Off label use [Unknown]
